FAERS Safety Report 5959887-3 (Version None)
Quarter: 2008Q4

REPORT INFORMATION
  Report Type: 
  Country: None (occurrence: None)
  Receive Date: 20081110
  Receipt Date: 20080903
  Transmission Date: 20090506
  Serious: No
  Sender: FDA-Public Use
  Company Number: 2008US002128

PATIENT
  Age: 84 Year
  Sex: Female
  Weight: 71.7 kg

DRUGS (22)
  1. LEXISCAN [Suspect]
     Indication: SCAN MYOCARDIAL PERFUSION
     Dosage: 5 ML, TOTAL DOSE, IV NOS
     Route: 042
     Dates: start: 20080707, end: 20080707
  2. FLUOROURACIL [Concomitant]
  3. CALCIUM + VITAMIN D (COLECALCIFEROL, CALCIUM) [Concomitant]
  4. AMOXICILLIN [Concomitant]
  5. IMDUR [Concomitant]
  6. DIOVAN [Concomitant]
  7. LASIX (FUROSEMDE) [Concomitant]
  8. NITROGLYCERIN (GLYCERYL TRINTRATE) [Concomitant]
  9. PLAVIX [Concomitant]
  10. ASPIRIN [Concomitant]
  11. MULTIVITAMIN [Concomitant]
  12. VYTORIN [Concomitant]
  13. PROTONIX [Concomitant]
  14. LORAZEPAM [Concomitant]
  15. ZOLOFT [Concomitant]
  16. TOPROL-XL [Concomitant]
  17. FISH OIL (FISH OIL) [Concomitant]
  18. TEKTURNA [Concomitant]
  19. NORVASC [Concomitant]
  20. MAGNESIUM OXIDE (MAGNESIUM OXIDE) [Concomitant]
  21. HYDROCORT [Concomitant]
  22. TRAMADOL HCL [Concomitant]

REACTIONS (3)
  - CHEST PAIN [None]
  - GAIT DISTURBANCE [None]
  - HYPOAESTHESIA [None]
